FAERS Safety Report 25286696 (Version 1)
Quarter: 2025Q2

REPORT INFORMATION
  Report Type: Spontaneous
  Country: TN (occurrence: TN)
  Receive Date: 20250509
  Receipt Date: 20250509
  Transmission Date: 20250717
  Serious: Yes (Life-Threatening, Disabling)
  Sender: ACCORD
  Company Number: TN-Accord-482649

PATIENT
  Age: 21 Year
  Sex: Female

DRUGS (6)
  1. CISPLATIN [Suspect]
     Active Substance: CISPLATIN
     Indication: Ewing^s sarcoma metastatic
  2. ETOPOSIDE [Suspect]
     Active Substance: ETOPOSIDE
     Indication: Ewing^s sarcoma metastatic
  3. ETOPOSIDE [Suspect]
     Active Substance: ETOPOSIDE
     Indication: Metastases to central nervous system
  4. ETOPOSIDE [Suspect]
     Active Substance: ETOPOSIDE
     Indication: Metastases to bone
  5. CISPLATIN [Suspect]
     Active Substance: CISPLATIN
     Indication: Metastases to central nervous system
  6. CISPLATIN [Suspect]
     Active Substance: CISPLATIN
     Indication: Metastases to bone

REACTIONS (3)
  - Mucosal inflammation [Unknown]
  - Deafness [Unknown]
  - Vomiting [Unknown]
